FAERS Safety Report 13725987 (Version 2)
Quarter: 2017Q3

REPORT INFORMATION
  Report Type: Spontaneous
  Country: US (occurrence: US)
  Receive Date: 20170707
  Receipt Date: 20170831
  Transmission Date: 20171127
  Serious: Yes (Hospitalization, Other)
  Sender: FDA-Public Use
  Company Number: US-GLAXOSMITHKLINE-US2017104091

PATIENT
  Sex: Male

DRUGS (3)
  1. BREO ELLIPTA [Suspect]
     Active Substance: FLUTICASONE FUROATE\VILANTEROL TRIFENATATE
     Indication: PRODUCT USED FOR UNKNOWN INDICATION
     Route: 055
  2. ADVAIR DISKUS [Suspect]
     Active Substance: FLUTICASONE PROPIONATE\SALMETEROL XINAFOATE
     Indication: CHRONIC OBSTRUCTIVE PULMONARY DISEASE
     Dosage: 1 PUFF(S), QD
     Route: 055
     Dates: end: 201704
  3. ADVAIR DISKUS [Suspect]
     Active Substance: FLUTICASONE PROPIONATE\SALMETEROL XINAFOATE
     Dosage: 1 PUFF(S), BID
     Route: 055
     Dates: start: 201704

REACTIONS (10)
  - Facial paralysis [Not Recovered/Not Resolved]
  - Candida infection [Recovering/Resolving]
  - Expired product administered [Unknown]
  - Cerebrovascular accident [Recovering/Resolving]
  - Salivary hypersecretion [Not Recovered/Not Resolved]
  - Product storage error [Unknown]
  - Product use issue [Unknown]
  - Drug dispensing error [Unknown]
  - Dysphagia [Not Recovered/Not Resolved]
  - Underdose [Unknown]
